FAERS Safety Report 5252350-7 (Version None)
Quarter: 2007Q1

REPORT INFORMATION
  Report Type: 
  Country: None (occurrence: None)
  Receive Date: 20070301
  Receipt Date: 20060706
  Transmission Date: 20070707
  Serious: No
  Sender: FDA-Public Use
  Company Number: US-BRISTOL-MYERS SQUIBB COMPANY-13434758

PATIENT
  Sex: Female
  Weight: 76 kg

DRUGS (10)
  1. TAXOL [Suspect]
     Indication: BREAST CANCER
     Route: 042
     Dates: start: 20060510
  2. DECADRON [Concomitant]
     Route: 042
  3. BENADRYL [Concomitant]
     Route: 042
  4. CIMETIDINE HCL [Concomitant]
     Route: 042
  5. SYNTHROID [Concomitant]
  6. ASPIRIN [Concomitant]
  7. TYLENOL [Concomitant]
  8. ARANESP [Concomitant]
     Route: 058
     Dates: start: 20060510
  9. ZOFRAN [Concomitant]
     Route: 048
  10. VENOFER [Concomitant]
     Route: 042
     Dates: start: 20060607

REACTIONS (2)
  - RASH [None]
  - WHITE BLOOD CELL COUNT DECREASED [None]
